FAERS Safety Report 12774730 (Version 1)
Quarter: 2016Q3

REPORT INFORMATION
  Report Type: Spontaneous
  Country: GB (occurrence: GB)
  Receive Date: 20160923
  Receipt Date: 20160923
  Transmission Date: 20161109
  Serious: Yes (Life-Threatening, Hospitalization, Other)
  Sender: FDA-Public Use
  Company Number: GB-HIKMA PHARMACEUTICALS CO. LTD-2016GB009076

PATIENT

DRUGS (11)
  1. MYCOPHENOLATE MOFETIL. [Suspect]
     Active Substance: MYCOPHENOLATE MOFETIL
     Indication: IMMUNOSUPPRESSION
     Dosage: 2.5 G, UNK
     Route: 065
  2. PREDNISOLONE                       /00016204/ [Suspect]
     Active Substance: PREDNISOLONE
     Dosage: 20 MG, UNK
     Route: 065
  3. PREDNISOLONE                       /00016204/ [Suspect]
     Active Substance: PREDNISOLONE
     Indication: UVEITIS
     Dosage: 1.5 MG/KG, UNK
     Route: 065
  4. METHYLPREDNISOLONE                 /00049605/ [Concomitant]
     Indication: UVEITIS
     Dosage: 3 ? 1 G, UNK
     Route: 042
  5. SULFAMETHOXAZOLE [Concomitant]
     Active Substance: SULFAMETHOXAZOLE
     Indication: LYMPHOPENIA
     Dosage: 480 MG, 1/WEEK
  6. AZATHIOPRINE. [Concomitant]
     Active Substance: AZATHIOPRINE
     Indication: UVEITIS
  7. TRIMETHOPRIM. [Concomitant]
     Active Substance: TRIMETHOPRIM
     Indication: LYMPHOPENIA
     Dosage: 480 MG, 1/WEEK
  8. INFLIXIMAB [Suspect]
     Active Substance: INFLIXIMAB
     Indication: UVEITIS
     Dosage: 5 MG/KG, WEEKS 0, 2, AND 6, AND 8-WEEKLY
     Route: 065
  9. TRIAMCINOLONE                      /00031902/ [Concomitant]
     Route: 047
  10. PREDNISOLONE                       /00016204/ [Suspect]
     Active Substance: PREDNISOLONE
     Dosage: 40- 60 MG, UNK
     Route: 065
  11. PREDNISOLONE                       /00016204/ [Suspect]
     Active Substance: PREDNISOLONE
     Dosage: 40 MG, UNK
     Route: 065

REACTIONS (5)
  - Intestinal obstruction [None]
  - Sepsis [Recovered/Resolved]
  - Off label use [Unknown]
  - Pneumonia [Recovered/Resolved]
  - Multiple organ dysfunction syndrome [Recovered/Resolved]
